FAERS Safety Report 16529694 (Version 3)
Quarter: 2019Q3

REPORT INFORMATION
  Report Type: Spontaneous
  Country: US (occurrence: US)
  Receive Date: 20190704
  Receipt Date: 20190730
  Transmission Date: 20191004
  Serious: Yes (Other)
  Sender: FDA-Public Use
  Company Number: US-UNITED THERAPEUTICS-UNT-2019-011388

PATIENT
  Sex: Male
  Weight: 62.59 kg

DRUGS (1)
  1. ORENITRAM [Suspect]
     Active Substance: TREPROSTINIL
     Indication: PULMONARY ARTERIAL HYPERTENSION
     Dosage: 1 MG, TID
     Route: 048
     Dates: start: 20181227

REACTIONS (3)
  - Fall [Recovered/Resolved with Sequelae]
  - Hip fracture [Unknown]
  - Neck pain [Not Recovered/Not Resolved]
